FAERS Safety Report 6986299-6 (Version None)
Quarter: 2010Q3

REPORT INFORMATION
  Report Type: 
  Country: None (occurrence: None)
  Receive Date: 20100915
  Receipt Date: 20090721
  Transmission Date: 20110219
  Serious: Yes (Other)
  Sender: FDA-Public Use
  Company Number: US-WYE-H09873309

PATIENT
  Sex: Female

DRUGS (14)
  1. PRISTIQ [Suspect]
     Indication: DEPRESSION
     Route: 048
     Dates: start: 20090526, end: 20090615
  2. COREG [Concomitant]
  3. SYNTHROID [Concomitant]
     Route: 048
     Dates: start: 20081031
  4. LIPITOR [Concomitant]
     Route: 048
     Dates: start: 20070910, end: 20090615
  5. NEXIUM [Concomitant]
     Route: 048
     Dates: start: 20090227
  6. ERGOCALCIFEROL [Concomitant]
     Dosage: UNKNOWN
  7. TRIAMCINOLONE ACETONIDE [Concomitant]
     Dosage: 0.1%, FREQUENCY UNSPECIFIED
     Dates: start: 20090526
  8. XOPENEX [Concomitant]
     Dosage: 1.25 MG/3 ML; ONE VIAL VERY FOUR TO SIX HOURS AS NEEDED
     Route: 055
     Dates: start: 20070910
  9. XYZAL [Concomitant]
     Dosage: 5 MG ONCE DAILY IF NEEDED
     Route: 048
     Dates: start: 20090407
  10. MACROBID [Concomitant]
     Indication: URINARY TRACT INFECTION
     Route: 048
     Dates: start: 20090609, end: 20090619
  11. TARKA [Concomitant]
     Dosage: 4/240 MG TWICE DAILY
     Route: 048
     Dates: start: 20090227, end: 20090608
  12. TARKA [Concomitant]
     Dosage: 4/240 ONCE DAILY
     Route: 048
     Dates: start: 20090609
  13. BUMEX [Concomitant]
     Route: 048
     Dates: start: 20070919
  14. DARVOCET-N 100 [Concomitant]
     Dosage: 100-650 MG; ONE OR TWO EVERY SIX HOURS AS NEEDED
     Route: 048
     Dates: start: 20080226

REACTIONS (7)
  - CONVULSION [None]
  - FALL [None]
  - NAUSEA [None]
  - OEDEMA PERIPHERAL [None]
  - TREMOR [None]
  - UNRESPONSIVE TO STIMULI [None]
  - URINARY TRACT INFECTION [None]
